FAERS Safety Report 8845847 (Version 1)
Quarter: 2012Q4

REPORT INFORMATION
  Report Type: 
  Country: US (occurrence: US)
  Receive Date: 20121017
  Receipt Date: 20121017
  Transmission Date: 20130627
  Serious: Yes (Hospitalization)
  Sender: FDA-Public Use
  Company Number: US-ROCHE-GNE091441

PATIENT
  Age: 1 Year
  Sex: Male

DRUGS (2)
  1. NUTROPIN [Suspect]
     Indication: RENAL FAILURE CHRONIC
     Route: 058
     Dates: start: 19971007
  2. NUTROPIN [Suspect]
     Indication: AZOTAEMIA

REACTIONS (7)
  - Azotaemia [Recovered/Resolved]
  - Hyperkalaemia [Unknown]
  - Acidosis [Unknown]
  - Diarrhoea [Unknown]
  - Failure to thrive [Unknown]
  - Renal osteodystrophy [Unknown]
  - Bone disorder [Unknown]
